FAERS Safety Report 8490142-6 (Version None)
Quarter: 2012Q2

REPORT INFORMATION
  Report Type: 
  Country: None (occurrence: None)
  Receive Date: 20120626
  Receipt Date: 20120615
  Transmission Date: 20120825
  Serious: Yes (Hospitalization)
  Sender: FDA-Public Use
  Company Number: ACO_30798_2012

PATIENT
  Age: 54 Year
  Sex: Female

DRUGS (2)
  1. AMPYRA [Suspect]
     Indication: PRODUCT USED FOR UNKNOWN INDICATION
     Dosage: 10 MG, BID, ORAL
     Route: 048
     Dates: start: 20120605, end: 20120614
  2. LYRICA [Suspect]
     Indication: NEUROPATHY PERIPHERAL
     Dates: end: 20120614

REACTIONS (4)
  - CHEST PAIN [None]
  - NAUSEA [None]
  - HYPERHIDROSIS [None]
  - CHEST DISCOMFORT [None]
